FAERS Safety Report 5389523-9 (Version None)
Quarter: 2007Q3

REPORT INFORMATION
  Report Type: 
  Country: None (occurrence: None)
  Receive Date: 20070717
  Receipt Date: 20070712
  Transmission Date: 20080115
  Serious: Yes (Hospitalization)
  Sender: FDA-Public Use
  Company Number: FRWYE021813JUL07

PATIENT
  Sex: Female

DRUGS (3)
  1. ETHINYL ESTRADIOL AND LEVONORGESTREL [Suspect]
     Route: 048
  2. KETOPROFEN [Suspect]
     Indication: HEADACHE
     Dosage: UNKNOWN
     Route: 048
     Dates: end: 20070410
  3. KETOPROFEN [Suspect]
     Indication: SCIATICA

REACTIONS (2)
  - CONDITION AGGRAVATED [None]
  - THROMBOCYTOPENIA [None]
